FAERS Safety Report 18324658 (Version 1)
Quarter: 2020Q3

REPORT INFORMATION
  Report Type: Spontaneous
  Country: US (occurrence: US)
  Receive Date: 20200929
  Receipt Date: 20200929
  Transmission Date: 20201103
  Serious: No
  Sender: FDA-Public Use
  Company Number: US-BION-008543

PATIENT
  Sex: Female
  Weight: 79.83 kg

DRUGS (1)
  1. IMODIUM A?D [Suspect]
     Active Substance: LOPERAMIDE HYDROCHLORIDE
     Indication: DIARRHOEA
     Dosage: TAKING TWICE AND THEN ONE AT A LATER DAY
     Route: 048
     Dates: end: 20200204

REACTIONS (1)
  - Drug ineffective [Not Recovered/Not Resolved]
